FAERS Safety Report 24858410 (Version 1)
Quarter: 2025Q1

REPORT INFORMATION
  Report Type: Spontaneous
  Country: JP (occurrence: JP)
  Receive Date: 20250117
  Receipt Date: 20250117
  Transmission Date: 20250409
  Serious: Yes (Other)
  Sender: SUNOVION
  Company Number: JP-SMPA-2025SMP000063

PATIENT

DRUGS (11)
  1. LATUDA [Suspect]
     Active Substance: LURASIDONE HYDROCHLORIDE
     Indication: Product used for unknown indication
     Route: 048
  2. AKINETON [Suspect]
     Active Substance: BIPERIDEN HYDROCHLORIDE
     Indication: Product used for unknown indication
     Route: 065
  3. VALPROATE SODIUM [Suspect]
     Active Substance: VALPROATE SODIUM
     Indication: Product used for unknown indication
     Route: 048
  4. MEPENZOLATE BROMIDE [Suspect]
     Active Substance: MEPENZOLATE BROMIDE
     Indication: Product used for unknown indication
     Dosage: 22.5 MG, QD
     Route: 048
  5. LEVOMEPROMAZINE HYDROCHLORIDE [Suspect]
     Active Substance: LEVOMEPROMAZINE HYDROCHLORIDE
     Indication: Product used for unknown indication
     Route: 065
  6. QUAZEPAM [Suspect]
     Active Substance: QUAZEPAM
     Indication: Product used for unknown indication
     Route: 065
  7. LORAZEPAM [Suspect]
     Active Substance: LORAZEPAM
     Indication: Product used for unknown indication
     Route: 065
  8. ETHYL LOFLAZEPATE [Suspect]
     Active Substance: ETHYL LOFLAZEPATE
     Indication: Product used for unknown indication
     Route: 065
  9. ZOLPIDEM TARTRATE [Suspect]
     Active Substance: ZOLPIDEM TARTRATE
     Indication: Product used for unknown indication
     Route: 065
  10. CILOSTAZOL [Suspect]
     Active Substance: CILOSTAZOL
     Indication: Product used for unknown indication
     Route: 065
  11. BROTIZOLAM [Suspect]
     Active Substance: BROTIZOLAM
     Indication: Product used for unknown indication
     Route: 065

REACTIONS (1)
  - Urinary retention [Not Recovered/Not Resolved]

NARRATIVE: CASE EVENT DATE: 20211028
